FAERS Safety Report 9154533 (Version 1)
Quarter: 2013Q1

REPORT INFORMATION
  Report Type: Spontaneous
  Country: US (occurrence: None)
  Receive Date: 20130308
  Receipt Date: 20130308
  Transmission Date: 20140127
  Serious: Yes (Other)
  Sender: FDA-Public Use
  Company Number: None

PATIENT
  Sex: Female
  Weight: 65.77 kg

DRUGS (1)
  1. MIRTAZAPINE [Suspect]
     Dates: start: 20130228, end: 20130305

REACTIONS (3)
  - Abdominal discomfort [None]
  - Diarrhoea [None]
  - Malaise [None]
